FAERS Safety Report 11244484 (Version 1)
Quarter: 2015Q3

REPORT INFORMATION
  Report Type: Report from Study
  Country: US (occurrence: US)
  Receive Date: 20150707
  Receipt Date: 20150707
  Transmission Date: 20151125
  Serious: No
  Sender: FDA-Public Use
  Company Number: US-GLAXOSMITHKLINE-US2015GSK091062

PATIENT
  Sex: Female

DRUGS (1)
  1. ORLISTAT CAPSULE [Suspect]
     Active Substance: ORLISTAT
     Indication: WEIGHT LOSS DIET
     Dosage: UNK

REACTIONS (3)
  - Cholelithiasis [Unknown]
  - Malaise [Unknown]
  - Abdominal pain upper [Unknown]
